FAERS Safety Report 4618727-5 (Version None)
Quarter: 2005Q1

REPORT INFORMATION
  Report Type: 
  Country: None (occurrence: None)
  Receive Date: 20050323
  Receipt Date: 20050308
  Transmission Date: 20050727
  Serious: Yes (Life-Threatening)
  Sender: FDA-Public Use
  Company Number: USA050188768

PATIENT
  Age: 39 Year
  Sex: Female
  Weight: 64 kg

DRUGS (3)
  1. STRATTERA [Suspect]
     Indication: ATTENTION DEFICIT/HYPERACTIVITY DISORDER
     Dosage: 40 MG DAY
     Dates: start: 20051206
  2. SYNTHROID [Concomitant]
  3. TAMOXIFEN CITRATE [Concomitant]

REACTIONS (3)
  - CHEST PAIN [None]
  - DYSPNOEA [None]
  - RASH [None]
